FAERS Safety Report 6663258-4 (Version None)
Quarter: 2010Q2

REPORT INFORMATION
  Report Type: 
  Country: None (occurrence: None)
  Receive Date: 20100401
  Receipt Date: 20100329
  Transmission Date: 20101027
  Serious: Yes (Death, Hospitalization)
  Sender: FDA-Public Use
  Company Number: GB-BAYER-201020555GPV

PATIENT
  Age: 64 Year
  Sex: Male

DRUGS (3)
  1. CIPROXIN [Suspect]
     Indication: PROSTATITIS
     Dosage: TOTAL DAILY DOSE: 500 MG
     Route: 048
     Dates: start: 20041025
  2. CIPROXIN [Suspect]
     Route: 048
     Dates: end: 20041110
  3. CIPROXIN [Suspect]
     Dates: start: 20000101

REACTIONS (5)
  - ABDOMINAL DISTENSION [None]
  - HEPATIC NECROSIS [None]
  - JAUNDICE [None]
  - PANCREATITIS HAEMORRHAGIC [None]
  - WEIGHT DECREASED [None]
